FAERS Safety Report 9551103 (Version 8)
Quarter: 2015Q1

REPORT INFORMATION
  Report Type: Report from Study
  Country: US (occurrence: US)
  Receive Date: 20130925
  Receipt Date: 20150310
  Transmission Date: 20150721
  Serious: Yes (Hospitalization)
  Sender: FDA-Public Use
  Company Number: US-BIOGENIDEC-2013BI090410

PATIENT
  Age: 33 Year
  Sex: Female

DRUGS (2)
  1. TYSABRI [Suspect]
     Active Substance: NATALIZUMAB
     Indication: MULTIPLE SCLEROSIS
     Route: 042
     Dates: start: 20091021, end: 20110921
  2. TYSABRI [Suspect]
     Active Substance: NATALIZUMAB
     Indication: MULTIPLE SCLEROSIS
     Route: 042
     Dates: start: 20120614, end: 20130802

REACTIONS (22)
  - Haemorrhoids [Not Recovered/Not Resolved]
  - Crying [Unknown]
  - Pain in extremity [Unknown]
  - Pancreatitis [Recovered/Resolved]
  - Thermal burn [Unknown]
  - Salpingitis [Not Recovered/Not Resolved]
  - Ovarian cyst [Not Recovered/Not Resolved]
  - Stress [Unknown]
  - Muscular weakness [Unknown]
  - Salpingectomy [Recovered/Resolved]
  - Musculoskeletal disorder [Unknown]
  - Fear of injection [Unknown]
  - Laceration [Unknown]
  - Urinary tract infection [Recovered/Resolved]
  - Hypoaesthesia [Not Recovered/Not Resolved]
  - General symptom [Unknown]
  - Muscle spasms [Unknown]
  - Headache [Unknown]
  - Helicobacter gastritis [Not Recovered/Not Resolved]
  - Abdominal pain upper [Unknown]
  - Eating disorder [Unknown]
  - Tendonitis [Unknown]

NARRATIVE: CASE EVENT DATE: 201306
